FAERS Safety Report 21551654 (Version 1)
Quarter: 2022Q4

REPORT INFORMATION
  Report Type: Report from Study
  Country: US (occurrence: US)
  Receive Date: 20221103
  Receipt Date: 20221103
  Transmission Date: 20230113
  Serious: Yes (Hospitalization, Other)
  Sender: FDA-Public Use
  Company Number: US-ABBVIE-22K-163-4517027-00

PATIENT
  Age: 51 Year
  Sex: Female
  Weight: 104 kg

DRUGS (4)
  1. HUMIRA [Suspect]
     Active Substance: ADALIMUMAB
     Indication: Hidradenitis
     Dosage: FORM STRENGTH 40MG
     Route: 058
     Dates: start: 20220624
  2. HUMIRA [Suspect]
     Active Substance: ADALIMUMAB
     Dosage: FORM STRENGTH 40MG
     Route: 058
  3. Pfizer/BioNTech [Concomitant]
     Indication: COVID-19 immunisation
     Dosage: ONE IN ONCE
     Route: 030
  4. DOXYCYCLINE [Concomitant]
     Active Substance: DOXYCYCLINE
     Indication: Tooth infection

REACTIONS (10)
  - Clostridium difficile infection [Recovered/Resolved]
  - Clostridium difficile infection [Recovered/Resolved]
  - Hidradenitis [Unknown]
  - Skin disorder [Unknown]
  - Colitis ulcerative [Recovering/Resolving]
  - Tooth infection [Recovering/Resolving]
  - Sinus disorder [Unknown]
  - Hypertension [Unknown]
  - Toothache [Unknown]
  - Abdominal pain [Recovering/Resolving]

NARRATIVE: CASE EVENT DATE: 20220727
